FAERS Safety Report 5404038-7 (Version None)
Quarter: 2007Q3

REPORT INFORMATION
  Report Type: 
  Country: None (occurrence: None)
  Receive Date: 20070802
  Receipt Date: 20070726
  Transmission Date: 20080115
  Serious: Yes (Hospitalization)
  Sender: FDA-Public Use
  Company Number: PHRM2007FR01928

PATIENT
  Age: 41 Year
  Sex: Male

DRUGS (6)
  1. VALSARTAN AND HYDROCHLOROTHIAZIDE [Suspect]
     Indication: HYPERTENSION
     Dosage: 1 DF DAILY
     Route: 048
     Dates: start: 20070301, end: 20070430
  2. ACOMPLIA [Suspect]
     Indication: OVERWEIGHT
     Dosage: 1 DF DAILY
     Route: 048
     Dates: start: 20070409, end: 20070430
  3. ESOMEPRAZOLE MAGNESIUM [Suspect]
     Dosage: 1 DF DAILY
     Route: 048
     Dates: end: 20070430
  4. AVANDAMET [Concomitant]
     Indication: DIABETES MELLITUS
  5. DIAMICRON [Concomitant]
     Indication: DIABETES MELLITUS
     Route: 048
  6. LIPANTHYL [Concomitant]
     Indication: DYSLIPIDAEMIA
     Dates: start: 20060901

REACTIONS (8)
  - BACK PAIN [None]
  - BLOOD CALCIUM INCREASED [None]
  - BLOOD CREATININE INCREASED [None]
  - BLOOD PHOSPHORUS DECREASED [None]
  - LEUKOCYTOSIS [None]
  - PYREXIA [None]
  - RED BLOOD CELL SEDIMENTATION RATE INCREASED [None]
  - RENAL FAILURE ACUTE [None]
